FAERS Safety Report 6550954-2 (Version None)
Quarter: 2010Q1

REPORT INFORMATION
  Report Type: 
  Country: None (occurrence: None)
  Receive Date: 20100125
  Receipt Date: 20100114
  Transmission Date: 20100710
  Serious: Yes (Death)
  Sender: FDA-Public Use
  Company Number: KR-PFIZER INC-2009233875

PATIENT
  Age: 70 Year
  Sex: Male
  Weight: 63.4 kg

DRUGS (2)
  1. VORICONAZOLE [Suspect]
     Indication: ASPERGILLOSIS
     Dosage: 200 MG, 2X/DAY
     Route: 048
     Dates: start: 20060517, end: 20060529
  2. SULFAMETHOXAZOLE AND TRIMETHOPRIM [Concomitant]
     Dosage: 1 TABLET TWICE A DAY
     Route: 042
     Dates: start: 20060504, end: 20060607

REACTIONS (1)
  - PNEUMONIA [None]
